FAERS Safety Report 6427610-4 (Version None)
Quarter: 2009Q4

REPORT INFORMATION
  Report Type: 
  Country: None (occurrence: None)
  Receive Date: 20091104
  Receipt Date: 20091029
  Transmission Date: 20100525
  Serious: Yes (Other)
  Sender: FDA-Public Use
  Company Number: GB-GENENTECH-293299

PATIENT
  Age: 18 Month
  Sex: Female

DRUGS (1)
  1. ACTIVASE [Suspect]
     Indication: CEREBRAL VENOUS THROMBOSIS
     Dosage: UNK
     Route: 042

REACTIONS (2)
  - DRUG EFFECT DECREASED [None]
  - POOR PERIPHERAL CIRCULATION [None]
